FAERS Safety Report 4543113-6 (Version None)
Quarter: 2004Q4

REPORT INFORMATION
  Report Type: 
  Country: None (occurrence: None)
  Receive Date: 20041229
  Receipt Date: 20041221
  Transmission Date: 20050328
  Serious: Yes (Death)
  Sender: FDA-Public Use
  Company Number: HQWYE146922DEC04

PATIENT
  Age: 57 Year
  Sex: Male

DRUGS (1)
  1. AMIODARONE (AMIODARONE, INJECTION) [Suspect]
     Indication: VENTRICULAR ARRHYTHMIA
     Dosage: INTRAVENOUS
     Route: 042
     Dates: start: 20030510, end: 20030512

REACTIONS (9)
  - ALANINE AMINOTRANSFERASE INCREASED [None]
  - ASPARTATE AMINOTRANSFERASE INCREASED [None]
  - BLOOD PRESSURE DECREASED [None]
  - CARDIAC FAILURE CHRONIC [None]
  - DIALYSIS [None]
  - LIVER FUNCTION TEST ABNORMAL [None]
  - PULSE ABSENT [None]
  - RENAL FAILURE CHRONIC [None]
  - SHOCK [None]
